FAERS Safety Report 15366502 (Version 2)
Quarter: 2018Q3

REPORT INFORMATION
  Report Type: Report from Study
  Country: US (occurrence: US)
  Receive Date: 20180910
  Receipt Date: 20180927
  Transmission Date: 20181010
  Serious: No
  Sender: FDA-Public Use
  Company Number: US-SA-2018SA249486

PATIENT
  Age: 64 Year
  Sex: Female

DRUGS (4)
  1. INSULIN GLARGINE [Suspect]
     Active Substance: INSULIN GLARGINE
     Indication: TYPE 2 DIABETES MELLITUS
     Dosage: 40 U, QD
  2. APIDRA [Concomitant]
     Active Substance: INSULIN GLULISINE
     Indication: DIABETES MELLITUS
     Dosage: UNK UNK, UNK
  3. VICTOZA [Concomitant]
     Active Substance: LIRAGLUTIDE
  4. GLIPIZIDE. [Concomitant]
     Active Substance: GLIPIZIDE

REACTIONS (4)
  - Blood glucose decreased [Unknown]
  - Product storage error [Unknown]
  - Overdose [Unknown]
  - Blood glucose increased [Unknown]
